FAERS Safety Report 5154501-1 (Version None)
Quarter: 2006Q4

REPORT INFORMATION
  Report Type: 
  Country: None (occurrence: None)
  Receive Date: 20061114
  Receipt Date: 20061030
  Transmission Date: 20070319
  Serious: Yes (Hospitalization, Other)
  Sender: FDA-Public Use
  Company Number: 2006131983

PATIENT
  Age: 30 Year
  Sex: Male

DRUGS (2)
  1. PHENYTOIN [Suspect]
     Indication: EPILEPSY
     Dosage: 300 MG
  2. CARBAMAZEPINE [Concomitant]

REACTIONS (10)
  - ANTICONVULSANT DRUG LEVEL BELOW THERAPEUTIC [None]
  - BRADYKINESIA [None]
  - CEREBELLAR ATAXIA [None]
  - COORDINATION ABNORMAL [None]
  - DIPLOPIA [None]
  - DRUG TOXICITY [None]
  - INTENTION TREMOR [None]
  - MUSCULOSKELETAL STIFFNESS [None]
  - NYSTAGMUS [None]
  - PARKINSONISM [None]
